FAERS Safety Report 21385625 (Version 1)
Quarter: 2022Q3

REPORT INFORMATION
  Report Type: Spontaneous
  Country: US (occurrence: None)
  Receive Date: 20220928
  Receipt Date: 20220928
  Transmission Date: 20221027
  Serious: No
  Sender: FDA-Public Use
  Company Number: 2022A323658

PATIENT
  Sex: Male
  Weight: 61.2 kg

DRUGS (4)
  1. BUDESONIDE\FORMOTEROL\GLYCOPYRRONIUM [Suspect]
     Active Substance: BUDESONIDE\FORMOTEROL\GLYCOPYRRONIUM
     Indication: Pulmonary resection
     Dosage: 2 PUFFS, BID
     Route: 055
  2. BUDESONIDE\FORMOTEROL\GLYCOPYRRONIUM [Suspect]
     Active Substance: BUDESONIDE\FORMOTEROL\GLYCOPYRRONIUM
     Indication: Emphysema
     Dosage: 2 PUFFS, BID
     Route: 055
  3. BUDESONIDE\FORMOTEROL\GLYCOPYRRONIUM [Suspect]
     Active Substance: BUDESONIDE\FORMOTEROL\GLYCOPYRRONIUM
     Indication: Chronic obstructive pulmonary disease
     Dosage: 2 PUFFS, BID
     Route: 055
  4. ALBUTEROL [Concomitant]
     Active Substance: ALBUTEROL
     Dosage: DURING THE DAY IF NEED IT

REACTIONS (9)
  - Fatigue [Unknown]
  - Dyspnoea [Unknown]
  - Prostatic specific antigen decreased [Unknown]
  - Blood testosterone increased [Unknown]
  - Blood testosterone decreased [Unknown]
  - Micturition disorder [Unknown]
  - Asthenia [Unknown]
  - Wrong technique in device usage process [Unknown]
  - Device issue [Unknown]
